FAERS Safety Report 14157763 (Version 1)
Quarter: 2017Q4

REPORT INFORMATION
  Report Type: Spontaneous
  Country: US (occurrence: US)
  Receive Date: 20171103
  Receipt Date: 20171103
  Transmission Date: 20180321
  Serious: Yes (Other)
  Sender: FDA-Public Use
  Company Number: US-HLSUS-2017-US-000700

PATIENT
  Age: 56 Year
  Sex: Male

DRUGS (1)
  1. CLOZARIL [Suspect]
     Active Substance: CLOZAPINE
     Dosage: 500MG DAILY
     Route: 048

REACTIONS (3)
  - Plasma cell myeloma [Unknown]
  - Sedation [Unknown]
  - Pain [Unknown]

NARRATIVE: CASE EVENT DATE: 201710
